FAERS Safety Report 9840909 (Version 1)
Quarter: 2013Q4

REPORT INFORMATION
  Report Type: Spontaneous
  Country: US (occurrence: None)
  Receive Date: 20131213
  Receipt Date: 20131213
  Transmission Date: 20140711
  Serious: Yes (Disabling, Other)
  Sender: FDA-Public Use
  Company Number: 2013SCPR006132

PATIENT
  Sex: Female

DRUGS (1)
  1. METOCLOPRAMIDE (METOCLOPRAMIDE) [Suspect]
     Indication: NAUSEA
     Dosage: UNK/DAY, ORAL
     Route: 048
     Dates: start: 2007, end: 2008

REACTIONS (2)
  - Tardive dyskinesia [None]
  - Incorrect drug administration duration [None]
